FAERS Safety Report 23709773 (Version 3)
Quarter: 2024Q2

REPORT INFORMATION
  Report Type: Report from Study
  Country: US (occurrence: US)
  Receive Date: 20240405
  Receipt Date: 20240521
  Transmission Date: 20240715
  Serious: Yes (Hospitalization)
  Sender: FDA-Public Use
  Company Number: US-JNJFOC-20240314264

PATIENT
  Age: 58 Year
  Sex: Female
  Weight: 76.4 kg

DRUGS (3)
  1. EPOPROSTENOL SODIUM [Suspect]
     Active Substance: EPOPROSTENOL SODIUM
     Indication: Pulmonary hypertension
     Route: 042
  2. EPOPROSTENOL SODIUM [Suspect]
     Active Substance: EPOPROSTENOL SODIUM
     Route: 042
  3. EPOPROSTENOL SODIUM [Suspect]
     Active Substance: EPOPROSTENOL SODIUM
     Route: 042

REACTIONS (6)
  - Gastrointestinal haemorrhage [Unknown]
  - Pleural effusion [Unknown]
  - Hypotension [Unknown]
  - Hyperglycaemia [Unknown]
  - Polyuria [Unknown]
  - Liver transplant [Unknown]

NARRATIVE: CASE EVENT DATE: 20240304
